FAERS Safety Report 25519396 (Version 1)
Quarter: 2025Q3

REPORT INFORMATION
  Report Type: Spontaneous
  Country: EU (occurrence: EU)
  Receive Date: 20250704
  Receipt Date: 20250704
  Transmission Date: 20251021
  Serious: Yes (Other)
  Sender: BAUSCH AND LOMB
  Company Number: EU-BAUSCH-BL-2025-007909

PATIENT
  Age: 60 Year
  Sex: Female

DRUGS (1)
  1. IMIQUIMOD [Suspect]
     Active Substance: IMIQUIMOD
     Indication: Product used for unknown indication
     Route: 061

REACTIONS (4)
  - Skin lesion [Unknown]
  - Application site erythema [Unknown]
  - Application site scab [Unknown]
  - Self-medication [Unknown]
